FAERS Safety Report 6815594-6 (Version None)
Quarter: 2010Q3

REPORT INFORMATION
  Report Type: 
  Country: None (occurrence: None)
  Receive Date: 20100702
  Receipt Date: 20100628
  Transmission Date: 20110219
  Serious: Yes (Hospitalization)
  Sender: FDA-Public Use
  Company Number: RU-ROCHE-711816

PATIENT
  Sex: Male
  Weight: 82 kg

DRUGS (1)
  1. TOCILIZUMAB [Suspect]
     Indication: RHEUMATOID ARTHRITIS
     Dosage: PERMANENTLY DISCONTINUED, LAST DOSE PRIOR TO SAE: 3 JUNE 2010
     Route: 042
     Dates: start: 20100505, end: 20100628

REACTIONS (1)
  - DEEP VEIN THROMBOSIS [None]
